FAERS Safety Report 10600336 (Version 1)
Quarter: 2014Q4

REPORT INFORMATION
  Report Type: Spontaneous
  Country: US (occurrence: US)
  Receive Date: 20141123
  Receipt Date: 20141123
  Transmission Date: 20150529
  Serious: Yes (Hospitalization)
  Sender: FDA-Public Use
  Company Number: US-BRISTOL-MYERS SQUIBB COMPANY-21592704

PATIENT
  Age: 61 Year
  Sex: Female

DRUGS (10)
  1. METOCLOPRAMIDE. [Concomitant]
     Active Substance: METOCLOPRAMIDE
  2. VITAMIN D [Concomitant]
     Active Substance: CHOLECALCIFEROL
  3. LOSARTAN [Concomitant]
     Active Substance: LOSARTAN
  4. TESSALON [Concomitant]
     Active Substance: BENZONATATE
  5. BYDUREON [Suspect]
     Active Substance: EXENATIDE
     Route: 058
     Dates: start: 201410, end: 20141110
  6. ZOCOR [Concomitant]
     Active Substance: SIMVASTATIN
  7. HUMALOG [Concomitant]
     Active Substance: INSULIN LISPRO
  8. PRILOSEC [Concomitant]
     Active Substance: OMEPRAZOLE MAGNESIUM
  9. PROMETHAZINE [Concomitant]
     Active Substance: PROMETHAZINE\PROMETHAZINE HYDROCHLORIDE
  10. HYDROCHLOROTHIAZIDE. [Concomitant]
     Active Substance: HYDROCHLOROTHIAZIDE

REACTIONS (4)
  - Vomiting [Unknown]
  - Influenza like illness [Unknown]
  - Dehydration [Unknown]
  - Dyspepsia [Unknown]
